FAERS Safety Report 4892140-8 (Version None)
Quarter: 2006Q1

REPORT INFORMATION
  Report Type: 
  Country: None (occurrence: None)
  Receive Date: 20060126
  Receipt Date: 20060120
  Transmission Date: 20060701
  Serious: Yes (Hospitalization)
  Sender: FDA-Public Use
  Company Number: 2006AP00377

PATIENT
  Sex: Male

DRUGS (2)
  1. BUPIVACAINE HCL [Suspect]
  2. KENACORT [Suspect]

REACTIONS (2)
  - RASH [None]
  - URTICARIA GENERALISED [None]
